FAERS Safety Report 10496607 (Version 3)
Quarter: 2015Q1

REPORT INFORMATION
  Report Type: Spontaneous
  Country: JP (occurrence: JP)
  Receive Date: 20141005
  Receipt Date: 20150211
  Transmission Date: 20150720
  Serious: Yes (Death)
  Sender: FDA-Public Use
  Company Number: JP-ROCHE-1468922

PATIENT
  Age: 49 Year
  Sex: Male
  Weight: 70 kg

DRUGS (16)
  1. IRINOTECAN HYDROCHLORIDE. [Concomitant]
     Active Substance: IRINOTECAN HYDROCHLORIDE
     Indication: RECTAL CANCER METASTATIC
  2. REBAMIPIDE [Concomitant]
     Active Substance: REBAMIPIDE
     Indication: GASTRITIS PROPHYLAXIS
     Dosage: DOSAGE IS UNCERTAIN.
     Route: 048
     Dates: start: 20140827, end: 20140926
  3. FUROSEMIDE. [Concomitant]
     Active Substance: FUROSEMIDE
     Indication: OEDEMA
     Dosage: DOSAGE IS UNCERTAIN.
     Route: 048
     Dates: start: 20140915, end: 20140926
  4. PHENOBAL [Concomitant]
     Active Substance: PHENOBARBITAL
     Indication: JAUNDICE
     Dosage: DOSAGE IS UNCERTAIN.
     Route: 048
     Dates: start: 20140919, end: 20140926
  5. LOXOPROFEN NA [Suspect]
     Active Substance: LOXOPROFEN SODIUM
     Indication: PAIN
     Route: 048
     Dates: start: 20140827, end: 20140926
  6. DECADRON [Suspect]
     Active Substance: DEXAMETHASONE
     Indication: PROPHYLAXIS OF NAUSEA AND VOMITING
     Route: 041
     Dates: start: 20140924, end: 20140924
  7. SPIRONOLACTONE. [Concomitant]
     Active Substance: SPIRONOLACTONE
     Indication: OEDEMA
     Dosage: DOSAGE IS UNCERTAIN.
     Route: 048
     Dates: start: 20140920, end: 20140926
  8. DECADRON [Suspect]
     Active Substance: DEXAMETHASONE
     Route: 048
     Dates: start: 20140925, end: 20140926
  9. IRINOTECAN HYDROCHLORIDE. [Concomitant]
     Active Substance: IRINOTECAN HYDROCHLORIDE
     Indication: COLON CANCER
     Route: 041
     Dates: start: 20140924, end: 20140924
  10. 5-FU [Concomitant]
     Active Substance: FLUOROURACIL
     Indication: COLON CANCER
     Dosage: DOSAGE IS UNCERTAIN.
     Route: 040
     Dates: start: 20140924, end: 20140924
  11. CALCIUM LEVOFOLINATE [Concomitant]
     Active Substance: LEVOLEUCOVORIN CALCIUM
     Indication: COLON CANCER
     Dosage: DOSAGE IS UNCERTAIN.
     Route: 041
     Dates: start: 20140924, end: 20140924
  12. URSO (JAPAN) [Concomitant]
     Indication: CHOLANGITIS
     Dosage: DOSAGE IS UNCERTAIN.
     Route: 048
     Dates: start: 20140911, end: 20140926
  13. CALCIUM LEVOFOLINATE [Concomitant]
     Active Substance: LEVOLEUCOVORIN CALCIUM
     Indication: RECTAL CANCER METASTATIC
  14. FERROMIA [Concomitant]
     Active Substance: FERROUS CITRATE
     Indication: IRON DEFICIENCY ANAEMIA
     Dosage: DOSAGE IS UNCERTAIN.
     Route: 048
     Dates: start: 20140910, end: 20140926
  15. AVASTIN [Suspect]
     Active Substance: BEVACIZUMAB
     Indication: COLON CANCER
     Dosage: DOSAGE IS UNCERTAIN.
     Route: 041
     Dates: start: 20140924, end: 20140924
  16. 5-FU [Concomitant]
     Active Substance: FLUOROURACIL
     Indication: RECTAL CANCER METASTATIC
     Dosage: DOSAGE IS UNCERTAIN.
     Route: 041
     Dates: start: 20140924, end: 20140924

REACTIONS (2)
  - Gastrointestinal perforation [Fatal]
  - Rectal cancer metastatic [Fatal]

NARRATIVE: CASE EVENT DATE: 20140926
